FAERS Safety Report 25086509 (Version 1)
Quarter: 2025Q1

REPORT INFORMATION
  Report Type: Spontaneous
  Country: US (occurrence: US)
  Receive Date: 20250317
  Receipt Date: 20250317
  Transmission Date: 20250409
  Serious: Yes (Other)
  Sender: Unknown Manufacturer
  Company Number: US-HUMACYTE GLOBAL, INC.-US-2025-ATEV-00001

PATIENT

DRUGS (1)
  1. SYMVESS [Suspect]
     Active Substance: ACELLULAR TISSUE ENGINEERED VESSEL
     Indication: Product used for unknown indication
     Route: 065

REACTIONS (1)
  - Anastomotic haemorrhage [Unknown]
